FAERS Safety Report 16197826 (Version 2)
Quarter: 2019Q2

REPORT INFORMATION
  Report Type: Not Available
  Country: US (occurrence: US)
  Receive Date: 20190415
  Receipt Date: 20190522
  Transmission Date: 20190711
  Serious: No
  Sender: FDA-Public Use
  Company Number: US-NEUROCRINE BIOSCIENCES INC.-2019NBI00859

PATIENT
  Age: 51 Year
  Sex: Female

DRUGS (1)
  1. INGREZZA [Suspect]
     Active Substance: VALBENAZINE
     Indication: TARDIVE DYSKINESIA
     Route: 048
     Dates: start: 20190311, end: 20190411

REACTIONS (5)
  - Gait disturbance [Unknown]
  - Drug ineffective [None]
  - Disturbance in attention [Unknown]
  - Tardive dyskinesia [Unknown]
  - Somnolence [Unknown]

NARRATIVE: CASE EVENT DATE: 2019
